FAERS Safety Report 7417870-5 (Version None)
Quarter: 2011Q2

REPORT INFORMATION
  Report Type: 
  Country: None (occurrence: None)
  Receive Date: 20110415
  Receipt Date: 20110405
  Transmission Date: 20111010
  Serious: Yes (Other)
  Sender: FDA-Public Use
  Company Number: HR-JNJFOC-20110402586

PATIENT
  Age: 47 Year
  Sex: Female

DRUGS (3)
  1. RISPOLEPT [Suspect]
     Indication: ACUTE PSYCHOSIS
     Route: 048
  2. RISPERDAL CONSTA [Suspect]
     Indication: ACUTE PSYCHOSIS
     Route: 030
  3. RIVOTRIL [Concomitant]
     Dosage: 0.5 WITH DOSING 0-0-1
     Route: 065

REACTIONS (2)
  - MUSCULOSKELETAL STIFFNESS [None]
  - AKATHISIA [None]
